FAERS Safety Report 21418946 (Version 1)
Quarter: 2022Q4

REPORT INFORMATION
  Report Type: Spontaneous
  Country: IN (occurrence: IN)
  Receive Date: 20221006
  Receipt Date: 20221006
  Transmission Date: 20230112
  Serious: Yes (Hospitalization, Other)
  Sender: FDA-Public Use
  Company Number: IN-ASTELLAS-2022US035160

PATIENT
  Age: 55 Year
  Sex: Male

DRUGS (2)
  1. CRESEMBA [Suspect]
     Active Substance: ISAVUCONAZONIUM SULFATE
     Indication: Mucormycosis
     Route: 042
     Dates: start: 20220723
  2. CEFUROXIME [Concomitant]
     Active Substance: CEFUROXIME
     Indication: Product used for unknown indication
     Dosage: UNK UNK, UNKNOWN FREQ.
     Route: 051

REACTIONS (12)
  - Sinusitis fungal [Unknown]
  - Disease progression [Unknown]
  - Cellulitis [Unknown]
  - Blood creatinine increased [Unknown]
  - Neutrophil count increased [Unknown]
  - Neutrophil percentage increased [Unknown]
  - Lymphocyte percentage decreased [Unknown]
  - Haematocrit decreased [Unknown]
  - Mean platelet volume decreased [Unknown]
  - Haemoglobin decreased [Unknown]
  - Red blood cell count decreased [Unknown]
  - Off label use [Unknown]

NARRATIVE: CASE EVENT DATE: 20220723
